FAERS Safety Report 4612483-2 (Version None)
Quarter: 2005Q1

REPORT INFORMATION
  Report Type: 
  Country: None (occurrence: None)
  Receive Date: 20050318
  Receipt Date: 20050301
  Transmission Date: 20050727
  Serious: Yes (Hospitalization)
  Sender: FDA-Public Use
  Company Number: CZ-ABBOTT-05P-217-0292750-00

PATIENT
  Sex: Female

DRUGS (6)
  1. HUMIRA [Suspect]
     Indication: RHEUMATOID ARTHRITIS
     Route: 058
     Dates: start: 20040601, end: 20040810
  2. AMOXI-CLAVULANICO [Interacting]
     Indication: BRONCHITIS ACUTE
     Route: 048
     Dates: start: 20040731
  3. PREDNISONE [Concomitant]
     Indication: RHEUMATOID ARTHRITIS
     Route: 048
     Dates: start: 19930101
  4. NIMESULIDE [Concomitant]
     Indication: DRUG USE FOR UNKNOWN INDICATION
     Route: 048
  5. NIMESULID [Concomitant]
     Indication: RHEUMATOID ARTHRITIS
     Route: 048
     Dates: start: 20030101
  6. RISEDRONATE SODIUM [Concomitant]
     Indication: OSTEOPOROSIS
     Route: 048
     Dates: start: 20040301

REACTIONS (4)
  - BRONCHITIS ACUTE [None]
  - DRUG INTERACTION [None]
  - HEPATIC ENZYME INCREASED [None]
  - UPPER RESPIRATORY TRACT INFECTION [None]
